FAERS Safety Report 17604591 (Version 1)
Quarter: 2020Q1

REPORT INFORMATION
  Report Type: Spontaneous
  Country: US (occurrence: US)
  Receive Date: 20200331
  Receipt Date: 20200331
  Transmission Date: 20200409
  Serious: No
  Sender: FDA-Public Use
  Company Number: US-PFIZER INC-2020125988

PATIENT
  Age: 60 Year
  Sex: Male

DRUGS (1)
  1. NIVESTYM [Suspect]
     Active Substance: FILGRASTIM-AAFI
     Indication: IDIOPATHIC NEUTROPENIA
     Dosage: UNK, DAILY (SHOT EVERYDAY)

REACTIONS (6)
  - Poor quality sleep [Unknown]
  - Blood test abnormal [Unknown]
  - Fatigue [Unknown]
  - Bone pain [Recovering/Resolving]
  - Treatment noncompliance [Unknown]
  - Aphthous ulcer [Not Recovered/Not Resolved]
